FAERS Safety Report 9799552 (Version 1)
Quarter: 2014Q1

REPORT INFORMATION
  Report Type: Spontaneous
  Country: US (occurrence: US)
  Receive Date: 20140106
  Receipt Date: 20140106
  Transmission Date: 20141002
  Serious: No
  Sender: FDA-Public Use
  Company Number: US-GILEAD-2010-0030239

PATIENT
  Age: 63 Year
  Sex: Male
  Weight: 49.44 kg

DRUGS (19)
  1. LETAIRIS [Suspect]
     Indication: PULMONARY ARTERIAL HYPERTENSION
     Route: 048
     Dates: start: 20100320
  2. XANAX XR [Concomitant]
  3. SERTRALINE [Concomitant]
  4. LIPITOR [Concomitant]
  5. TORSEMIDE [Concomitant]
  6. METOLAZONE [Concomitant]
  7. RANTIDINE [Concomitant]
  8. NOVOLOG [Concomitant]
  9. LEVEMIR [Concomitant]
  10. ADVAIR [Concomitant]
  11. HYDROCODONE W/APAP [Concomitant]
  12. METOPROLOL [Concomitant]
  13. ALPRAZOLAM [Concomitant]
  14. SPIRONOLACTONE [Concomitant]
  15. ASA [Concomitant]
  16. ALLOPURINOL [Concomitant]
  17. WARFARIN [Concomitant]
  18. SPIRIVA [Concomitant]
  19. MUCINEX [Concomitant]

REACTIONS (1)
  - Swelling [Not Recovered/Not Resolved]
